FAERS Safety Report 17930230 (Version 1)
Quarter: 2020Q2

REPORT INFORMATION
  Report Type: Report from Study
  Country: FR (occurrence: FR)
  Receive Date: 20200623
  Receipt Date: 20200623
  Transmission Date: 20200714
  Serious: Yes (Death)
  Sender: FDA-Public Use
  Company Number: FR-PFIZER INC-2020236888

PATIENT

DRUGS (5)
  1. 5-FLUOROURACIL [FLUOROURACIL] [Concomitant]
     Active Substance: FLUOROURACIL
     Dosage: 2400 MG/M2, CYCLIC (46-H CONTINUOUS 5FU INFUSION, 1 CYCLE EVERY 2 WEEKS)
     Route: 042
  2. OXALIPLATIN. [Concomitant]
     Active Substance: OXALIPLATIN
     Indication: COLORECTAL CANCER METASTATIC
     Dosage: 85 MG/M2, CYCLIC (2-H INFUSION AT DAY 1, 1 CYCLE EVERY 2 WEEKS)
  3. IRINOTECAN HCL [Suspect]
     Active Substance: IRINOTECAN HYDROCHLORIDE
     Indication: COLORECTAL CANCER METASTATIC
     Dosage: 50 MG/ML, CYCLIC (100-300 BEADS, 1 VIAL PER LOBE)
  4. LEUCOVORIN [FOLINIC ACID] [Concomitant]
     Active Substance: LEUCOVORIN
     Indication: COLORECTAL CANCER METASTATIC
     Dosage: 400 MG/M2, CYCLIC (120-MIN INFUSION AT DAY 1, 1 CYCLE EVERY 2 WEEKS)
  5. 5-FLUOROURACIL [FLUOROURACIL] [Concomitant]
     Active Substance: FLUOROURACIL
     Indication: COLORECTAL CANCER METASTATIC
     Dosage: 400 MG/M2, CYCLIC (BOLUS AT DAY 1, 1 CYCLE EVERY 2 WEEKS)
     Route: 040

REACTIONS (1)
  - Peritonitis [Fatal]
